FAERS Safety Report 4473016-7 (Version None)
Quarter: 2004Q4

REPORT INFORMATION
  Report Type: 
  Country: None (occurrence: None)
  Receive Date: 20041008
  Receipt Date: 20041008
  Transmission Date: 20050328
  Serious: Yes (Other)
  Sender: FDA-Public Use
  Company Number: None

PATIENT
  Age: 50 Year
  Sex: Female
  Weight: 77.1115 kg

DRUGS (2)
  1. ATENOLOL [Suspect]
     Indication: HYPERTENSION
     Dosage: 50 MG , HS PO
     Route: 048
     Dates: start: 20000601
  2. ACETAMINOPHEN AND CODEINE PHOSPHATE [Suspect]
     Indication: ARTHRITIS
     Dosage: 1 TAB AT BEDTIME-PRN PO
     Route: 048
     Dates: start: 20000601

REACTIONS (4)
  - HYPERSENSITIVITY [None]
  - PHARMACEUTICAL PRODUCT COMPLAINT [None]
  - PRURITUS [None]
  - RASH [None]
